FAERS Safety Report 7407964-2 (Version None)
Quarter: 2011Q2

REPORT INFORMATION
  Report Type: 
  Country: None (occurrence: None)
  Receive Date: 20110412
  Receipt Date: 20110328
  Transmission Date: 20111010
  Serious: No
  Sender: FDA-Public Use
  Company Number: US-PFIZER INC-2011066357

PATIENT
  Sex: Female
  Weight: 60.317 kg

DRUGS (8)
  1. PLAVIX [Concomitant]
     Dosage: UNK
  2. CARVEDILOL [Concomitant]
     Dosage: 12 MG, UNK
  3. RAMIPRIL [Concomitant]
     Dosage: 2.5 MG, UNK
  4. PROTONIX [Suspect]
     Dosage: 40 MG, 1X/DAY AS NEEDED
     Route: 048
     Dates: start: 20110301
  5. ASPIRIN [Concomitant]
     Dosage: UNK
  6. PROTONIX [Suspect]
     Indication: GASTROOESOPHAGEAL REFLUX DISEASE
     Dosage: 40 MG, 2X/DAY
     Route: 048
     Dates: start: 20100401, end: 20101101
  7. POTASSIUM [Concomitant]
     Dosage: UNK
  8. PROTONIX [Suspect]
     Dosage: 40 MG, 2X/DAY
     Route: 048
     Dates: end: 20110301

REACTIONS (5)
  - INAPPROPRIATE SCHEDULE OF DRUG ADMINISTRATION [None]
  - DRUG INEFFECTIVE [None]
  - GASTROINTESTINAL DISORDER [None]
  - INCORRECT DOSE ADMINISTERED [None]
  - DYSPEPSIA [None]
